FAERS Safety Report 8301634-4 (Version None)
Quarter: 2012Q2

REPORT INFORMATION
  Report Type: 
  Country: None (occurrence: None)
  Receive Date: 20120420
  Receipt Date: 20120409
  Transmission Date: 20120825
  Serious: Yes (Disabling)
  Sender: FDA-Public Use
  Company Number: JP-UCBSA-048443

PATIENT
  Age: 20 Year
  Sex: Male
  Weight: 47.5 kg

DRUGS (9)
  1. KEPPRA [Suspect]
     Indication: POST-TRAUMATIC EPILEPSY
     Route: 048
     Dates: start: 20111215, end: 20120104
  2. EPIRENAT [Concomitant]
     Indication: POST-TRAUMATIC EPILEPSY
     Dosage: DAILY DOSE : 27ML
     Route: 048
     Dates: start: 20100101
  3. BACLOFEN [Concomitant]
     Indication: MUSCULOSKELETAL STIFFNESS
     Dosage: DAILY DOSE:30MG
     Route: 048
     Dates: start: 20100101
  4. ZONISAMIDE [Concomitant]
     Dates: start: 20120111
  5. URSO 250 [Concomitant]
     Indication: HEPATIC FUNCTION ABNORMAL
     Dosage: DAILY DOSE: 300MG
     Route: 048
     Dates: start: 20100101
  6. ZONISAMIDE [Concomitant]
  7. BISOLVON [Concomitant]
     Indication: PROPHYLAXIS
     Dosage: DAILY DOSE:3DF
     Route: 048
     Dates: start: 20100101
  8. MUCOSOLVAN [Concomitant]
     Indication: PROPHYLAXIS
     Dosage: DAILY DOSE:3DF
     Route: 048
     Dates: start: 20100101
  9. LAC-B [Concomitant]
     Indication: CONSTIPATION PROPHYLAXIS
     Dosage: DAILY DOSE:3G
     Route: 048
     Dates: start: 20100101

REACTIONS (1)
  - MUSCULOSKELETAL STIFFNESS [None]
